FAERS Safety Report 11865579 (Version 1)
Quarter: 2015Q4

REPORT INFORMATION
  Report Type: Spontaneous
  Country: GB (occurrence: GB)
  Receive Date: 20151223
  Receipt Date: 20151223
  Transmission Date: 20160305
  Serious: Yes (Other)
  Sender: FDA-Public Use
  Company Number: GB-ABBVIE-15P-167-1526212-00

PATIENT
  Age: 8 Year
  Sex: Female
  Weight: 38.1 kg

DRUGS (2)
  1. NUROFEN [Concomitant]
     Active Substance: IBUPROFEN
     Indication: PRODUCT USED FOR UNKNOWN INDICATION
  2. KLARICID [Suspect]
     Active Substance: CLARITHROMYCIN
     Indication: TONSILLITIS
     Dosage: 10 CC. 125 MG/5ML
     Route: 048
     Dates: start: 20151207, end: 20151207

REACTIONS (3)
  - Swelling face [Recovered/Resolved]
  - Body temperature abnormal [Unknown]
  - Lip injury [Recovering/Resolving]

NARRATIVE: CASE EVENT DATE: 201512
